FAERS Safety Report 18777822 (Version 4)
Quarter: 2022Q1

REPORT INFORMATION
  Report Type: Spontaneous
  Country: US (occurrence: US)
  Receive Date: 20210122
  Receipt Date: 20220120
  Transmission Date: 20220423
  Serious: Yes (Other)
  Sender: FDA-Public Use
  Company Number: US-SEATTLE GENETICS-2020SGN02052

PATIENT
  Age: 73 Year
  Sex: Female

DRUGS (9)
  1. TUKYSA [Suspect]
     Active Substance: TUCATINIB
     Indication: Breast cancer
     Dosage: UNK, BID
     Route: 048
     Dates: start: 202001
  2. TUKYSA [Suspect]
     Active Substance: TUCATINIB
     Dosage: UNK
     Route: 065
  3. TUKYSA [Suspect]
     Active Substance: TUCATINIB
     Dosage: UNK
     Route: 065
  4. TUKYSA [Suspect]
     Active Substance: TUCATINIB
     Dosage: UNK
     Route: 065
  5. TUKYSA [Suspect]
     Active Substance: TUCATINIB
     Dosage: UNK
     Route: 065
  6. TUKYSA [Suspect]
     Active Substance: TUCATINIB
     Dosage: UNK
     Route: 065
  7. ATARAX [Suspect]
     Active Substance: HYDROXYZINE HYDROCHLORIDE
     Indication: Pruritus
     Route: 065
  8. DOXYCYCLINE [Concomitant]
     Active Substance: DOXYCYCLINE
     Indication: Arthropod bite
     Route: 065
  9. HERCEPTIN [Concomitant]
     Active Substance: TRASTUZUMAB
     Indication: Breast cancer
     Route: 065

REACTIONS (26)
  - Neuropathy peripheral [Unknown]
  - Vision blurred [Unknown]
  - Balance disorder [Unknown]
  - Hot flush [Unknown]
  - Feeling abnormal [Unknown]
  - Pain in extremity [Unknown]
  - Off label use [Unknown]
  - Somnolence [Unknown]
  - Pruritus [Unknown]
  - Nail disorder [Unknown]
  - Pain in extremity [Unknown]
  - Onychomadesis [Unknown]
  - Disturbance in attention [Unknown]
  - Muscle spasms [Unknown]
  - Malaise [Unknown]
  - Ligament sprain [Unknown]
  - Product dose omission issue [Unknown]
  - Fall [Unknown]
  - Arthropod bite [Unknown]
  - Alopecia [Unknown]
  - Headache [Unknown]
  - Fatigue [Unknown]
  - Abdominal pain upper [Unknown]
  - Epistaxis [Unknown]
  - Arthralgia [Unknown]
  - Nausea [Unknown]

NARRATIVE: CASE EVENT DATE: 20200505
